FAERS Safety Report 9942279 (Version 1)
Quarter: 2014Q1

REPORT INFORMATION
  Report Type: Report from Study
  Country: US (occurrence: US)
  Receive Date: 20140303
  Receipt Date: 20140303
  Transmission Date: 20141002
  Serious: No
  Sender: FDA-Public Use
  Company Number: US-ABBVIE-13P-163-1042628-00

PATIENT
  Age: 67 Year
  Sex: Male

DRUGS (18)
  1. HUMIRA [Suspect]
     Indication: CROHN^S DISEASE
     Route: 058
     Dates: end: 201301
  2. HUMIRA [Suspect]
     Indication: RHEUMATOID ARTHRITIS
     Route: 058
     Dates: start: 201301
  3. SINGULAIR [Concomitant]
     Indication: SEASONAL ALLERGY
     Dosage: 10 MG DAILY
  4. OMEPRAZOLE [Concomitant]
     Indication: GASTROOESOPHAGEAL REFLUX DISEASE
     Dosage: 40 MG DAILY
  5. MICARDIS [Concomitant]
     Indication: HYPERTENSION
     Dosage: 80 MG DAILY
  6. METFORMIN [Concomitant]
     Indication: TYPE 2 DIABETES MELLITUS
     Dosage: 850 MG DAILY
  7. GLYBURIDE [Concomitant]
     Dosage: 1 MG EVERY OTHER DAY ROTATING WITH 2 MG
  8. METHOTREXATE [Concomitant]
     Indication: CROHN^S DISEASE
     Dosage: 2.5 MG X 6 WEEKLY
  9. METHOTREXATE [Concomitant]
     Indication: RHEUMATOID ARTHRITIS
  10. ASACOL [Concomitant]
     Indication: CROHN^S DISEASE
     Dosage: 6 TABLETS DAILY
  11. CYMBALTA [Concomitant]
     Indication: NEUROPATHY PERIPHERAL
     Dosage: 60 MG DAILY
  12. IRON [Concomitant]
     Indication: ANAEMIA
  13. VITAMIN C [Concomitant]
     Indication: SUPPLEMENTATION THERAPY
     Dosage: 1000 MG DAILY
  14. CALCIUM CITRATE [Concomitant]
     Indication: SUPPLEMENTATION THERAPY
     Dosage: 1 TABLET DAILY
  15. FISH OIL [Concomitant]
     Indication: SUPPLEMENTATION THERAPY
     Dosage: 4 DAILY
  16. VITAMIN D3 [Concomitant]
     Indication: SUPPLEMENTATION THERAPY
     Dosage: 2300 IU DAILY
  17. VITAMIN B12 [Concomitant]
     Indication: SUPPLEMENTATION THERAPY
     Dosage: 1 TABLET DAILY
  18. FLORASTOR [Concomitant]
     Indication: SUPPLEMENTATION THERAPY
     Dosage: 1 TABLET DAILY

REACTIONS (3)
  - Overgrowth bacterial [Recovering/Resolving]
  - Drug effect delayed [Unknown]
  - Crohn^s disease [Unknown]
